FAERS Safety Report 13444945 (Version 1)
Quarter: 2017Q2

REPORT INFORMATION
  Report Type: Report from Study
  Country: NL (occurrence: NL)
  Receive Date: 20170414
  Receipt Date: 20170414
  Transmission Date: 20170830
  Serious: Yes (Hospitalization, Other)
  Sender: FDA-Public Use
  Company Number: NL-BRISTOL-MYERS SQUIBB COMPANY-BMS-2017-031246

PATIENT
  Age: 59 Year
  Sex: Female

DRUGS (1)
  1. NIVOLUMAB [Suspect]
     Active Substance: NIVOLUMAB
     Indication: TRIPLE NEGATIVE BREAST CANCER
     Dosage: 230 MG, Q2WK
     Route: 042
     Dates: start: 20170217

REACTIONS (2)
  - Pain [Recovering/Resolving]
  - Infected neoplasm [Recovering/Resolving]

NARRATIVE: CASE EVENT DATE: 20170407
